FAERS Safety Report 5267315-9 (Version None)
Quarter: 2007Q1

REPORT INFORMATION
  Report Type: 
  Country: None (occurrence: None)
  Receive Date: 20070316
  Receipt Date: 20070307
  Transmission Date: 20070707
  Serious: Yes (Other)
  Sender: FDA-Public Use
  Company Number: AU-GLAXOSMITHKLINE-B0461995A

PATIENT
  Sex: Female

DRUGS (2)
  1. AROPAX [Suspect]
     Indication: ANXIETY
     Dates: start: 20020101
  2. VALIUM [Concomitant]

REACTIONS (33)
  - AGGRESSION [None]
  - AMENORRHOEA [None]
  - ANOREXIA [None]
  - ANXIETY [None]
  - BRUXISM [None]
  - CHILLS [None]
  - CONFUSIONAL STATE [None]
  - DEPRESSION [None]
  - DIZZINESS [None]
  - DRUG WITHDRAWAL SYNDROME [None]
  - FEAR [None]
  - GASTROENTERITIS [None]
  - HEADACHE [None]
  - HYPERACUSIS [None]
  - HYPERAESTHESIA [None]
  - HYPERHIDROSIS [None]
  - INSOMNIA [None]
  - IRRITABILITY [None]
  - MIGRAINE [None]
  - MOOD SWINGS [None]
  - MUSCLE SPASMS [None]
  - NAUSEA [None]
  - NIGHTMARE [None]
  - PANIC ATTACK [None]
  - PARAESTHESIA [None]
  - PHOTOSENSITIVITY REACTION [None]
  - PYREXIA [None]
  - SUICIDAL IDEATION [None]
  - SYNCOPE [None]
  - TREMOR [None]
  - VERTIGO [None]
  - VISION BLURRED [None]
  - VOMITING [None]
